FAERS Safety Report 6695363-0 (Version None)
Quarter: 2010Q2

REPORT INFORMATION
  Report Type: 
  Country: None (occurrence: None)
  Receive Date: 20100423
  Receipt Date: 20100423
  Transmission Date: 20101027
  Serious: Yes (Hospitalization)
  Sender: FDA-Public Use
  Company Number: None

PATIENT
  Age: 62 Year
  Sex: Male
  Weight: 68.1 kg

DRUGS (6)
  1. IBUPROFEN [Suspect]
     Indication: BACK PAIN
     Dosage: 800 MG TID PRN PO RECENT
     Route: 048
  2. ASPIRIN [Suspect]
     Dosage: 81 MG UP TO 8 TAB/DAY PO CHRONIC
     Route: 048
  3. CELEBREX [Suspect]
     Indication: BACK PAIN
     Dosage: PO RECENT
     Route: 048
  4. LORAZEPAM [Concomitant]
  5. APAP W/ CODEINE [Concomitant]
  6. SKELAXIN [Concomitant]

REACTIONS (4)
  - GASTRIC ULCER [None]
  - HELICOBACTER TEST POSITIVE [None]
  - OESOPHAGEAL CARCINOMA [None]
  - OESOPHAGEAL ULCER [None]
